FAERS Safety Report 4707005-1 (Version None)
Quarter: 2005Q3

REPORT INFORMATION
  Report Type: 
  Country: None (occurrence: None)
  Receive Date: 20050701
  Receipt Date: 20050609
  Transmission Date: 20060218
  Serious: Yes (Other)
  Sender: FDA-Public Use
  Company Number: 2005-05-0863

PATIENT
  Age: 19 Year
  Sex: Female
  Weight: 108.8633 kg

DRUGS (4)
  1. ALBUTEROL [Suspect]
     Indication: ASTHMA
     Dosage: PRN ORAL AER INH
     Route: 048
     Dates: end: 20050511
  2. ALBUTEROL [Suspect]
     Indication: UPPER RESPIRATORY TRACT INFECTION
     Dosage: PRN ORAL AER INH
     Route: 048
     Dates: end: 20050511
  3. TRAZADONE [Concomitant]
  4. LEXAPRO [Concomitant]

REACTIONS (7)
  - AMNESIA [None]
  - CHOKING [None]
  - CYANOSIS [None]
  - DEPRESSED LEVEL OF CONSCIOUSNESS [None]
  - DEVICE FAILURE [None]
  - FOREIGN BODY TRAUMA [None]
  - PHARMACEUTICAL PRODUCT COMPLAINT [None]
